FAERS Safety Report 25509896 (Version 1)
Quarter: 2025Q3

REPORT INFORMATION
  Report Type: Spontaneous
  Country: US (occurrence: None)
  Receive Date: 20250702
  Receipt Date: 20250702
  Transmission Date: 20251021
  Serious: Yes (Other)
  Sender: FDA-CTU
  Company Number: None

PATIENT
  Age: 32 Year
  Sex: Female

DRUGS (2)
  1. SERTRALINE HYDROCHLORIDE [Suspect]
     Active Substance: SERTRALINE HYDROCHLORIDE
     Indication: Perinatal depression
  2. SERTRALINE HYDROCHLORIDE [Suspect]
     Active Substance: SERTRALINE HYDROCHLORIDE
     Indication: Prophylaxis

REACTIONS (8)
  - Exposure during pregnancy [None]
  - Maternal drugs affecting foetus [None]
  - Flat affect [None]
  - Suicidal ideation [None]
  - Sexual dysfunction [None]
  - Hypothyroidism [None]
  - Type 2 diabetes mellitus [None]
  - Tinnitus [None]
